FAERS Safety Report 4315017-5 (Version None)
Quarter: 2004Q1

REPORT INFORMATION
  Report Type: 
  Country: None (occurrence: None)
  Receive Date: 20040309
  Receipt Date: 20040225
  Transmission Date: 20041129
  Serious: Yes (Other)
  Sender: FDA-Public Use
  Company Number: US-JNJFOC-20040206255

PATIENT
  Age: 67 Year
  Sex: Female

DRUGS (18)
  1. INFLIXIMAB (INFLIXIMAB, RECOMBINANT) LYOPHILIZED POWDER [Suspect]
     Indication: RHEUMATOID ARTHRITIS
     Dosage: INTRAVENOUS
     Route: 042
     Dates: start: 20010514
  2. METHOTREXATE [Concomitant]
  3. KLOR-CON [Concomitant]
  4. PLAQUENIL [Concomitant]
  5. NASACORT [Concomitant]
  6. SOMA [Concomitant]
  7. TYLENOL [Concomitant]
  8. CLARITIN [Concomitant]
  9. CLONAPIN (CLONAZEPAM) [Concomitant]
  10. ZESTRIL [Concomitant]
  11. OXYCONTIN [Concomitant]
  12. SEREVENT [Concomitant]
  13. ACCOLATE [Concomitant]
  14. CALCIUM (CALCIUM) [Concomitant]
  15. VITAMIN D [Concomitant]
  16. PRILOSEC [Concomitant]
  17. CLINORIL [Concomitant]
  18. FOLIC ACID [Concomitant]

REACTIONS (3)
  - HYPOAESTHESIA ORAL [None]
  - MOUTH ULCERATION [None]
  - PARAESTHESIA ORAL [None]
